FAERS Safety Report 24534260 (Version 1)
Quarter: 2024Q4

REPORT INFORMATION
  Report Type: Spontaneous
  Country: US (occurrence: US)
  Receive Date: 20241022
  Receipt Date: 20241022
  Transmission Date: 20250114
  Serious: No
  Sender: CALLIDITAS THERAPEUTICS AB
  Company Number: US-Calliditas-2024CAL02210

PATIENT
  Age: 52 Year
  Sex: Male
  Weight: 75.7 kg

DRUGS (1)
  1. TARPEYO [Suspect]
     Active Substance: BUDESONIDE
     Indication: IgA nephropathy
     Route: 048
     Dates: start: 20240412

REACTIONS (3)
  - Muscle spasms [Recovering/Resolving]
  - Anaemia [Unknown]
  - Weight increased [Unknown]
